FAERS Safety Report 6565235-0 (Version None)
Quarter: 2010Q1

REPORT INFORMATION
  Report Type: 
  Country: None (occurrence: None)
  Receive Date: 20100201
  Receipt Date: 20100120
  Transmission Date: 20100710
  Serious: Yes (Life-Threatening, Hospitalization)
  Sender: FDA-Public Use
  Company Number: DE-ROCHE-665818

PATIENT
  Sex: Male
  Weight: 85 kg

DRUGS (10)
  1. ACTEMRA [Suspect]
     Indication: RHEUMATOID ARTHRITIS
     Route: 042
     Dates: start: 20090211, end: 20090811
  2. PREDNISOLON [Concomitant]
     Indication: RHEUMATOID ARTHRITIS
     Route: 048
     Dates: start: 19990101
  3. SIMVAHEXAL [Concomitant]
     Route: 048
  4. CONCOR [Concomitant]
     Route: 048
  5. PANTOPRAZOLE [Concomitant]
     Route: 048
  6. DIGITOXIN INJ [Concomitant]
     Route: 048
  7. DELIX [Concomitant]
     Route: 048
  8. DELIX 5 PLUS [Concomitant]
     Route: 048
  9. METHOTREXATE [Concomitant]
     Route: 048
     Dates: end: 20090923
  10. FOLSAN [Concomitant]
     Route: 048
     Dates: end: 20090924

REACTIONS (2)
  - BRONCHOPNEUMONIA [None]
  - SEPTIC SHOCK [None]
